FAERS Safety Report 6983992-6 (Version None)
Quarter: 2010Q3

REPORT INFORMATION
  Report Type: 
  Country: None (occurrence: None)
  Receive Date: 20100915
  Receipt Date: 20090508
  Transmission Date: 20110219
  Serious: No
  Sender: FDA-Public Use
  Company Number: US-WYE-H09289109

PATIENT
  Sex: Female
  Weight: 90.8 kg

DRUGS (3)
  1. PRISTIQ [Suspect]
     Indication: DEPRESSION
     Route: 048
     Dates: start: 20090505
  2. XANAX [Concomitant]
  3. IBUPROFEN [Concomitant]

REACTIONS (3)
  - ANXIETY [None]
  - HEADACHE [None]
  - NAUSEA [None]
